FAERS Safety Report 15432057 (Version 2)
Quarter: 2018Q4

REPORT INFORMATION
  Report Type: Spontaneous
  Country: TR (occurrence: TR)
  Receive Date: 20180926
  Receipt Date: 20181004
  Transmission Date: 20190204
  Serious: Yes (Other)
  Sender: FDA-Public Use
  Company Number: TR-SHIRE-TR201834206

PATIENT

DRUGS (1)
  1. CINRYZE [Suspect]
     Active Substance: HUMAN C1-ESTERASE INHIBITOR
     Indication: HEREDITARY ANGIOEDEMA
     Dosage: UNK, 2X A WEEK
     Route: 042

REACTIONS (4)
  - Vein disorder [Unknown]
  - Hereditary angioedema [Unknown]
  - Laryngeal oedema [Unknown]
  - Injection site discomfort [Unknown]
